FAERS Safety Report 8521424-7 (Version None)
Quarter: 2012Q3

REPORT INFORMATION
  Report Type: 
  Country: None (occurrence: None)
  Receive Date: 20120719
  Receipt Date: 20120714
  Transmission Date: 20120928
  Serious: Yes (Hospitalization)
  Sender: FDA-Public Use
  Company Number: US-ACTELION-A-US2012-64710

PATIENT

DRUGS (4)
  1. ASPIRIN [Concomitant]
  2. VENTAVIS [Suspect]
     Indication: PULMONARY ARTERIAL HYPERTENSION
     Dosage: UNK
     Route: 055
  3. TRACLEER [Suspect]
     Indication: PULMONARY ARTERIAL HYPERTENSION
     Dosage: UNK
     Route: 048
     Dates: start: 20021121
  4. SILDENAFIL [Concomitant]

REACTIONS (3)
  - OEDEMA PERIPHERAL [None]
  - HYPOAESTHESIA [None]
  - PAIN IN EXTREMITY [None]
